FAERS Safety Report 10991461 (Version 1)
Quarter: 2015Q2

REPORT INFORMATION
  Report Type: Spontaneous
  Country: GB (occurrence: GB)
  Receive Date: 20150406
  Receipt Date: 20150406
  Transmission Date: 20150821
  Serious: Yes (Other)
  Sender: FDA-Public Use
  Company Number: GB-BAYER-2015-017402

PATIENT
  Age: 34 Year
  Sex: Female

DRUGS (1)
  1. MIRENA [Suspect]
     Active Substance: LEVONORGESTREL
     Dosage: 20 MCG/24HR, CONT
     Route: 015

REACTIONS (5)
  - Haemorrhage in pregnancy [Not Recovered/Not Resolved]
  - Malaise [None]
  - Pregnancy with contraceptive device [None]
  - Amenorrhoea [None]
  - Drug ineffective [None]

NARRATIVE: CASE EVENT DATE: 2014
